FAERS Safety Report 5628131-9 (Version None)
Quarter: 2008Q1

REPORT INFORMATION
  Report Type: 
  Country: None (occurrence: None)
  Receive Date: 20080215
  Receipt Date: 20080207
  Transmission Date: 20080703
  Serious: Yes (Other)
  Sender: FDA-Public Use
  Company Number: HR-ELI_LILLY_AND_COMPANY-HR200802001449

PATIENT
  Sex: Female

DRUGS (5)
  1. FORTEO [Suspect]
     Indication: OSTEOPOROSIS
     Dosage: UNK, UNKNOWN
     Route: 058
     Dates: start: 20071120, end: 20080206
  2. ASPIRIN [Concomitant]
     Dosage: 100 MG, UNKNOWN
     Route: 065
  3. VITAMIN B-12 [Concomitant]
     Dosage: UNK, UNKNOWN
     Route: 065
  4. VITAMIN D [Concomitant]
     Dosage: UNK, UNKNOWN
     Route: 065
  5. CARVELOL [Concomitant]
     Dosage: 1 D/F, UNKNOWN
     Route: 065

REACTIONS (1)
  - RASH PUSTULAR [None]
